FAERS Safety Report 12981981 (Version 1)
Quarter: 2016Q4

REPORT INFORMATION
  Report Type: Not Available
  Country: FR (occurrence: FR)
  Receive Date: 20161129
  Receipt Date: 20161129
  Transmission Date: 20170207
  Serious: Yes (Hospitalization)
  Sender: FDA-Public Use
  Company Number: FR-MUNDIPHARMA DS AND PHARMACOVIGILANCE-GBR-2016-0041909

PATIENT
  Age: 75 Year
  Sex: Male

DRUGS (8)
  1. OXYNORM [Suspect]
     Active Substance: OXYCODONE HYDROCHLORIDE
     Indication: PAIN
     Dosage: 5 MG, QID
     Route: 048
  2. PRAVASTATINE NA [Concomitant]
     Active Substance: PRAVASTATIN SODIUM
     Dosage: STRENGHT 20MG
  3. OXYCONTIN [Suspect]
     Active Substance: OXYCODONE HYDROCHLORIDE
     Indication: PAIN
     Dosage: 10MG IN THE MORNING AND 20MG IN THE EVENING (STRENGHT 10MG)
     Route: 048
  4. ZELITREX [Concomitant]
     Active Substance: VALACYCLOVIR HYDROCHLORIDE
     Dosage: 500 MG, BID
  5. REVLIMID [Concomitant]
     Active Substance: LENALIDOMIDE
     Dosage: STRENGHT 15MG FROM DAY 1 (D1) TO DAY 21 (D21)
     Dates: start: 201604
  6. DEXAMETHASONE. [Concomitant]
     Active Substance: DEXAMETHASONE
     Dosage: STRENGHT 10MG ON D1, D8, D15, D22 (CYCLE 2 DAY 18 ON 09-JUN)
  7. EUPANTOL [Concomitant]
     Active Substance: PANTOPRAZOLE SODIUM
     Dosage: UNK
  8. OXYNORM [Suspect]
     Active Substance: OXYCODONE HYDROCHLORIDE
     Dosage: 0 OR 1 CAPSULE OF 5 MG PER DAY
     Route: 048

REACTIONS (12)
  - Posture abnormal [Recovered/Resolved]
  - Aphasia [Recovered/Resolved]
  - Dysarthria [Recovered/Resolved]
  - Confusional state [Recovered/Resolved]
  - Hypokalaemia [Recovered/Resolved]
  - Urinary retention [Recovered/Resolved]
  - Visual impairment [Recovered/Resolved]
  - Unresponsive to stimuli [Recovered/Resolved]
  - Patient uncooperative [Recovered/Resolved]
  - Pyrexia [Recovered/Resolved]
  - Cognitive disorder [Recovered/Resolved]
  - C-reactive protein increased [Recovered/Resolved]

NARRATIVE: CASE EVENT DATE: 20160609
